FAERS Safety Report 19176019 (Version 15)
Quarter: 2021Q3

REPORT INFORMATION
  Report Type: Report from Study
  Country: FR (occurrence: FR)
  Receive Date: 20210423
  Receipt Date: 20210715
  Transmission Date: 20211014
  Serious: Yes (Hospitalization)
  Sender: FDA-Public Use
  Company Number: FR-EISAI MEDICAL RESEARCH-EC-2021-091781

PATIENT
  Age: 75 Year
  Sex: Male
  Weight: 64 kg

DRUGS (17)
  1. GLIMEPIRIDE. [Concomitant]
     Active Substance: GLIMEPIRIDE
     Dates: start: 200501
  2. INEXIUM [Concomitant]
     Active Substance: ESOMEPRAZOLE
     Dates: start: 20210217
  3. PEMBROLIZUMAB. [Suspect]
     Active Substance: PEMBROLIZUMAB
     Route: 041
     Dates: start: 20210316, end: 20210316
  4. TIOTROPIUM BROMIDE [Concomitant]
     Active Substance: TIOTROPIUM BROMIDE
     Dates: start: 200901
  5. LYRICA [Concomitant]
     Active Substance: PREGABALIN
     Dates: start: 202002
  6. TRIFLUCAN [Suspect]
     Active Substance: FLUCONAZOLE
     Indication: GLOSSITIS
     Route: 065
     Dates: start: 20210406, end: 20210416
  7. SUCRALFATE. [Concomitant]
     Active Substance: SUCRALFATE
     Dates: start: 20210217
  8. SERETIDE [Concomitant]
     Active Substance: FLUTICASONE PROPIONATE\SALMETEROL XINAFOATE
     Dates: start: 200901
  9. SPASFON [Concomitant]
     Dates: start: 20210309
  10. DOLIPRANE [Concomitant]
     Active Substance: ACETAMINOPHEN
     Dates: start: 20201104
  11. LENVATINIB [Suspect]
     Active Substance: LENVATINIB
     Indication: HEPATOCELLULAR CARCINOMA
     Route: 048
     Dates: start: 20210203, end: 20210405
  12. LENVATINIB [Suspect]
     Active Substance: LENVATINIB
     Route: 048
     Dates: start: 20210427
  13. PEMBROLIZUMAB. [Suspect]
     Active Substance: PEMBROLIZUMAB
     Route: 041
     Dates: start: 20210427
  14. LENVATINIB [Suspect]
     Active Substance: LENVATINIB
     Route: 048
     Dates: start: 20210406, end: 20210412
  15. PEMBROLIZUMAB. [Suspect]
     Active Substance: PEMBROLIZUMAB
     Indication: HEPATOCELLULAR CARCINOMA
     Route: 041
     Dates: start: 20210203, end: 20210203
  16. GALVUS [Concomitant]
     Active Substance: VILDAGLIPTIN
     Dates: start: 200501
  17. DAFALGAN CODEINE [Concomitant]
     Active Substance: ACETAMINOPHEN\CODEINE PHOSPHATE
     Dates: start: 20210309

REACTIONS (3)
  - Urinary tract infection [Recovered/Resolved]
  - Hepatic cytolysis [Recovered/Resolved]
  - Blood bilirubin increased [Recovered/Resolved]

NARRATIVE: CASE EVENT DATE: 20210407
